FAERS Safety Report 23968126 (Version 1)
Quarter: 2024Q2

REPORT INFORMATION
  Report Type: Spontaneous
  Country: US (occurrence: US)
  Receive Date: 20240612
  Receipt Date: 20240612
  Transmission Date: 20240716
  Serious: No
  Sender: FDA-Public Use
  Company Number: US-PERRIGO-23US009649

PATIENT
  Sex: Male
  Weight: 99.773 kg

DRUGS (1)
  1. DICLOFENAC SODIUM [Suspect]
     Active Substance: DICLOFENAC\DICLOFENAC SODIUM
     Indication: Arthralgia
     Dosage: 2 INCHES, BID
     Route: 061
     Dates: start: 2019

REACTIONS (3)
  - Incorrect product administration duration [None]
  - Wrong technique in product usage process [None]
  - Underdose [None]
